FAERS Safety Report 16311713 (Version 3)
Quarter: 2019Q3

REPORT INFORMATION
  Report Type: Report from Study
  Country: FR (occurrence: FR)
  Receive Date: 20190514
  Receipt Date: 20190724
  Transmission Date: 20191004
  Serious: Yes (Death, Hospitalization, Other)
  Sender: FDA-Public Use
  Company Number: FR-JAZZ-2019-FR-004095

PATIENT

DRUGS (5)
  1. NEORAL [Concomitant]
     Active Substance: CYCLOSPORINE
     Indication: PROPHYLAXIS AGAINST GRAFT VERSUS HOST DISEASE
     Dosage: 300 MG
     Route: 048
     Dates: start: 20170605, end: 20170810
  2. ZELITREX [Concomitant]
     Active Substance: VALACYCLOVIR HYDROCHLORIDE
     Indication: PROPHYLAXIS
     Dosage: 500 MG
     Route: 048
     Dates: start: 20170504, end: 20180518
  3. AMOXICILLIN. [Concomitant]
     Active Substance: AMOXICILLIN
     Indication: INFECTION PROPHYLAXIS
     Dosage: 2 G
     Route: 048
     Dates: start: 20170605, end: 20180518
  4. DEFITELIO [Suspect]
     Active Substance: DEFIBROTIDE SODIUM
     Indication: PROPHYLAXIS
     Dosage: 26 MG/KG, QD
     Route: 042
     Dates: start: 20170512, end: 20170604
  5. CHOLURSO [Concomitant]
     Active Substance: URSODIOL
     Indication: PROPHYLAXIS
     Dosage: 1 G
     Route: 048
     Dates: start: 20170504, end: 20180515

REACTIONS (6)
  - Acute myeloid leukaemia recurrent [Unknown]
  - Pneumonia haemophilus [Recovered/Resolved with Sequelae]
  - Viral haemorrhagic cystitis [Recovered/Resolved]
  - Off label use [Unknown]
  - Sepsis [Fatal]
  - Septic shock [Fatal]

NARRATIVE: CASE EVENT DATE: 20170512
